FAERS Safety Report 8128143-X (Version None)
Quarter: 2012Q1

REPORT INFORMATION
  Report Type: 
  Country: None (occurrence: None)
  Receive Date: 20120210
  Receipt Date: 20120131
  Transmission Date: 20120608
  Serious: Yes (Hospitalization, Other)
  Sender: FDA-Public Use
  Company Number: US-PFIZER INC-2011290084

PATIENT
  Sex: Female
  Weight: 65.2 kg

DRUGS (25)
  1. ALENDRONATE SODIUM [Concomitant]
     Dosage: 1 DF (1 TABLET), WEEKLY
     Route: 048
     Dates: start: 20100101
  2. ZESTRIL [Concomitant]
     Dosage: UNK
     Dates: start: 20110801
  3. IRON [Concomitant]
     Route: 048
  4. VITAMIN A [Concomitant]
     Dosage: UNK
     Route: 048
  5. PANTOPRAZOLE [Concomitant]
     Dosage: 40 MG, 1X/DAY, EC
     Route: 048
  6. LISINOPRIL [Concomitant]
     Dosage: 5 MG, 1X/DAY
     Route: 048
  7. PRINZIDE [Concomitant]
     Dosage: UNK
  8. MECLIZINE [Concomitant]
     Dosage: 25 MG, 1X/DAY, CHEWABLE
     Route: 048
  9. DILTIAZEM [Concomitant]
     Dosage: 1 DF (1 CAPSULE), 2X/DAY
     Route: 048
  10. LISINOPRIL AND HYDROCHLOROTHIAZIDE [Concomitant]
     Dosage: 20 MG/ 12.5, 1X/DAY
     Route: 048
  11. ACETAMINOPHEN [Concomitant]
     Dosage: 325 MG, AS NEEDED
     Route: 048
  12. PACLITAXEL [Suspect]
     Indication: METASTATIC MALIGNANT MELANOMA
     Dosage: 174 MG/M2, (TOTAL DOSE 265 MG), EVERY 3 WEEKS
     Route: 042
     Dates: start: 20110817, end: 20111109
  13. COMPAZINE [Concomitant]
  14. VITAMIN D [Concomitant]
     Dosage: 400 UNITS
     Route: 048
  15. IBUPROFEN (ADVIL) [Concomitant]
     Route: 048
  16. MEGACE [Concomitant]
     Dosage: 800 MG, 1X/DAY
     Route: 048
  17. FOSAMAX [Concomitant]
     Route: 048
  18. ASCORBIC ACID [Concomitant]
     Route: 048
  19. ZESTORETIC [Concomitant]
     Dosage: UNK
  20. AXITINIB [Suspect]
     Indication: METASTATIC MALIGNANT MELANOMA
     Dosage: 3 MG, 2X/DAY, 2 WEEKS ON/1 WEEK OFF
     Route: 048
     Dates: start: 20110817
  21. PRINIVIL [Concomitant]
     Dosage: UNK
     Dates: start: 20110801
  22. NIACIN [Concomitant]
     Dosage: 500 MG, 1X/DAY, CR
     Route: 048
  23. CARBOPLATIN [Suspect]
     Indication: METASTATIC MALIGNANT MELANOMA
     Dosage: 560 MG, EVERY 3 WEEKS
     Route: 042
     Dates: start: 20110817, end: 20111109
  24. DILTIAZEM HYDROCHLORIDE [Concomitant]
     Dosage: 1 UNK, 2X/DAY
     Route: 048
  25. METFORMIN HYDROCHLORIDE [Concomitant]
     Dosage: 500 MG, 1X/DAY
     Route: 048
     Dates: start: 20100101

REACTIONS (3)
  - URINARY TRACT INFECTION [None]
  - HYPOPHAGIA [None]
  - FAILURE TO THRIVE [None]
